FAERS Safety Report 5613497-6 (Version None)
Quarter: 2008Q1

REPORT INFORMATION
  Report Type: 
  Country: None (occurrence: None)
  Receive Date: 20080130
  Receipt Date: 20080118
  Transmission Date: 20080703
  Serious: Yes (Hospitalization)
  Sender: FDA-Public Use
  Company Number: 2008BI000218

PATIENT
  Sex: Female

DRUGS (1)
  1. AVONEX [Suspect]
     Indication: DRUG USE FOR UNKNOWN INDICATION
     Dosage: 30 UG; QW; IM
     Route: 030
     Dates: start: 19970401, end: 20071217

REACTIONS (6)
  - ADRENAL NEOPLASM [None]
  - CARDIAC DISORDER [None]
  - COCCIDIOIDOMYCOSIS [None]
  - HYPOTENSION [None]
  - LUNG NEOPLASM [None]
  - RESPIRATORY TRACT INFECTION FUNGAL [None]
